FAERS Safety Report 16660763 (Version 2)
Quarter: 2019Q4

REPORT INFORMATION
  Report Type: Spontaneous
  Country: US (occurrence: US)
  Receive Date: 20190802
  Receipt Date: 20191018
  Transmission Date: 20200122
  Serious: Yes (Other)
  Sender: FDA-Public Use
  Company Number: US-ASTRAZENECA-2019SF08504

PATIENT
  Sex: Female

DRUGS (1)
  1. BYDUREON [Suspect]
     Active Substance: EXENATIDE
     Route: 065

REACTIONS (7)
  - Weight decreased [Unknown]
  - Pain [Unknown]
  - Injection site mass [Unknown]
  - Asthenia [Unknown]
  - Mass [Unknown]
  - Pancreatitis [Unknown]
  - Renal failure [Unknown]
